FAERS Safety Report 16640148 (Version 2)
Quarter: 2020Q1

REPORT INFORMATION
  Report Type: Spontaneous
  Country: US (occurrence: US)
  Receive Date: 20190727
  Receipt Date: 20200307
  Transmission Date: 20200409
  Serious: No
  Sender: FDA-Public Use
  Company Number: US-NEUROCRINE BIOSCIENCES INC.-2019NBI01973

PATIENT
  Sex: Male

DRUGS (3)
  1. INGREZZA [Suspect]
     Active Substance: VALBENAZINE
     Indication: TARDIVE DYSKINESIA
     Route: 048
     Dates: start: 20171201, end: 20171208
  2. INGREZZA [Suspect]
     Active Substance: VALBENAZINE
     Route: 048
     Dates: start: 20171209
  3. INGREZZA [Suspect]
     Active Substance: VALBENAZINE
     Route: 048

REACTIONS (1)
  - Sedation [Unknown]
